FAERS Safety Report 6602114-4 (Version None)
Quarter: 2010Q1

REPORT INFORMATION
  Report Type: 
  Country: None (occurrence: None)
  Receive Date: 20100225
  Receipt Date: 20100216
  Transmission Date: 20100710
  Serious: Yes (Other)
  Sender: FDA-Public Use
  Company Number: GB-BAXTER-2010BH003341

PATIENT
  Age: 40 Year
  Sex: Male

DRUGS (4)
  1. CYCLOPHOSPHAMIDE [Suspect]
     Indication: COLON CANCER
     Route: 042
     Dates: start: 20100118, end: 20100119
  2. FLUDARABINE [Suspect]
     Indication: COLON CANCER
     Route: 042
     Dates: start: 20100120, end: 20100124
  3. MFEZ [Suspect]
     Indication: COLON CANCER
     Route: 042
     Dates: start: 20100125, end: 20100125
  4. PROLEUKIN [Suspect]
     Indication: COLON CANCER
     Route: 042
     Dates: start: 20100125, end: 20100129

REACTIONS (2)
  - OXYGEN SATURATION DECREASED [None]
  - RESPIRATORY RATE INCREASED [None]
